FAERS Safety Report 9918770 (Version 2)
Quarter: 2014Q1

REPORT INFORMATION
  Report Type: Spontaneous
  Country: GB (occurrence: GB)
  Receive Date: 20140224
  Receipt Date: 20140327
  Transmission Date: 20141002
  Serious: Yes (Hospitalization, Other)
  Sender: FDA-Public Use
  Company Number: GB-JNJFOC-20140210818

PATIENT
  Age: 34 Year
  Sex: Female

DRUGS (4)
  1. ACETAMINOPHEN [Suspect]
     Route: 048
  2. ACETAMINOPHEN [Suspect]
     Indication: PRODUCT USED FOR UNKNOWN INDICATION
     Route: 048
  3. BENZYLPENICILLIN [Concomitant]
     Indication: PRODUCT USED FOR UNKNOWN INDICATION
     Route: 042
  4. EPIDURAL ANESTHESIA [Concomitant]
     Indication: ANALGESIC THERAPY
     Route: 008

REACTIONS (5)
  - Amniotic cavity infection [Unknown]
  - Exposure during pregnancy [Recovered/Resolved]
  - Headache [Unknown]
  - Chills [Unknown]
  - Malaise [Unknown]
